FAERS Safety Report 4866396-1 (Version None)
Quarter: 2005Q4

REPORT INFORMATION
  Report Type: 
  Country: None (occurrence: None)
  Receive Date: 20051227
  Receipt Date: 20050304
  Transmission Date: 20060501
  Serious: Yes (Hospitalization)
  Sender: FDA-Public Use
  Company Number: US-MERCK-0503USA00991

PATIENT
  Age: 71 Year
  Sex: Female
  Weight: 57 kg

DRUGS (18)
  1. VIOXX [Suspect]
     Indication: ARTHRITIS
     Route: 048
     Dates: start: 20030901, end: 20040201
  2. PROPOXYPHENE NAPSYLATE [Concomitant]
     Route: 065
  3. MIACALCIN [Concomitant]
     Route: 065
  4. OXAZEPAM [Concomitant]
     Route: 065
  5. POTASSIUM CHLORIDE [Concomitant]
     Route: 065
  6. ASPIRIN [Concomitant]
     Route: 065
  7. VERAPAMIL [Concomitant]
     Route: 065
  8. CLONIDINE [Concomitant]
     Route: 065
  9. CALCIUM (UNSPECIFIED) [Concomitant]
     Route: 065
  10. COLYTE [Concomitant]
     Route: 065
  11. ARTIFICIAL TEARS [Concomitant]
     Route: 065
  12. SINGULAIR [Concomitant]
     Route: 065
  13. COMBIVENT [Concomitant]
     Route: 065
  14. SEREVENT [Concomitant]
     Route: 065
  15. PROTONIX [Concomitant]
     Route: 065
  16. LASIX [Concomitant]
     Route: 065
  17. MIDAZOLAM [Concomitant]
     Route: 065
  18. QVAR [Concomitant]
     Route: 065

REACTIONS (4)
  - ADVERSE EVENT [None]
  - GASTRIC DISORDER [None]
  - MYOCARDIAL INFARCTION [None]
  - PRESCRIBED OVERDOSE [None]
